FAERS Safety Report 5677016-0 (Version None)
Quarter: 2008Q1

REPORT INFORMATION
  Report Type: 
  Country: None (occurrence: None)
  Receive Date: 20080324
  Receipt Date: 20080312
  Transmission Date: 20080703
  Serious: Yes (Death, Hospitalization, Other)
  Sender: FDA-Public Use
  Company Number: PHBS2008PK03239

PATIENT
  Age: 22 Year
  Sex: Male

DRUGS (5)
  1. CYCLOSPORINE [Suspect]
     Indication: PROPHYLAXIS AGAINST GRAFT VERSUS HOST DISEASE
     Dates: start: 20030301
  2. METHOTREXATE [Suspect]
     Indication: STEM CELL TRANSPLANT
     Dates: start: 20030301
  3. BUSULFAN [Suspect]
     Indication: STEM CELL TRANSPLANT
     Dosage: 16 MG/KG/D
     Dates: start: 20030301
  4. CYCLOPHOSPHAMIDE [Suspect]
     Indication: STEM CELL TRANSPLANT
     Dosage: 200 MG/KG/D
     Dates: start: 20030301
  5. ANTIBIOTICS [Concomitant]
     Dates: start: 20030301

REACTIONS (12)
  - ACUTE GRAFT VERSUS HOST DISEASE IN SKIN [None]
  - ASPERGILLOSIS [None]
  - COUGH [None]
  - CREPITATIONS [None]
  - DYSPNOEA [None]
  - FEBRILE NEUTROPENIA [None]
  - NEPHROPATHY TOXIC [None]
  - NODULE [None]
  - PNEUMONIA CYTOMEGALOVIRAL [None]
  - SKIN LESION [None]
  - SPLENOMEGALY [None]
  - SWELLING [None]
